FAERS Safety Report 16573608 (Version 1)
Quarter: 2019Q3

REPORT INFORMATION
  Report Type: Spontaneous
  Country: GB (occurrence: GB)
  Receive Date: 20190715
  Receipt Date: 20190715
  Transmission Date: 20191004
  Serious: Yes (Other)
  Sender: FDA-Public Use
  Company Number: GB-TEVA-2019-GB-1076954

PATIENT
  Age: 68 Year
  Sex: Female
  Weight: 88 kg

DRUGS (9)
  1. CLOPIDOGREL [Concomitant]
     Active Substance: CLOPIDOGREL BISULFATE
     Dosage: TAKE ONE ONCE DAILY
     Dates: start: 20181031, end: 20190426
  2. DABIGATRAN ETEXILATE [Concomitant]
     Active Substance: DABIGATRAN ETEXILATE
     Dosage: ONE TO BE TAKEN TWICE DAILY WITH FOOD
     Dates: start: 20181031
  3. CARVEDILOL. [Concomitant]
     Active Substance: CARVEDILOL
     Dosage: ONCE DAILY
     Dates: start: 20181031
  4. ATORVASTATIN [Concomitant]
     Active Substance: ATORVASTATIN
     Dates: start: 20181031
  5. NICORANDIL [Concomitant]
     Active Substance: NICORANDIL
     Dosage: TAKE HALF A TABLET DAILY
     Dates: start: 20181031
  6. NITROFURANTOIN. [Suspect]
     Active Substance: NITROFURANTOIN
     Dosage: 200MG
     Route: 065
     Dates: start: 20190614
  7. CANDESARTAN. [Concomitant]
     Active Substance: CANDESARTAN
     Dosage: TAKE TWO DAILY
     Dates: start: 20181031
  8. ALLOPURINOL. [Concomitant]
     Active Substance: ALLOPURINOL
     Dosage: TAKE ONE DAILY
     Dates: start: 20181031
  9. OMEPRAZOLE. [Concomitant]
     Active Substance: OMEPRAZOLE
     Dosage: ONE OR TWO DAILY AS REQUIRED
     Dates: start: 20181031

REACTIONS (2)
  - Rash [Recovered/Resolved]
  - Urticaria [Recovered/Resolved]

NARRATIVE: CASE EVENT DATE: 20190617
